FAERS Safety Report 6006087-7 (Version None)
Quarter: 2008Q4

REPORT INFORMATION
  Report Type: 
  Country: None (occurrence: None)
  Receive Date: 20081217
  Receipt Date: 20081204
  Transmission Date: 20090506
  Serious: Yes (Hospitalization)
  Sender: FDA-Public Use
  Company Number: IL-ELI_LILLY_AND_COMPANY-IL200812001815

PATIENT
  Age: 58 Year
  Sex: Male
  Weight: 132 kg

DRUGS (11)
  1. BYETTA [Suspect]
     Indication: TYPE 2 DIABETES MELLITUS
     Dosage: UNK, UNKNOWN
     Route: 058
     Dates: start: 20080401, end: 20080101
  2. PILOCARPINE [Concomitant]
     Dosage: UNK, UNKNOWN
  3. ALPHAGAN [Concomitant]
     Dosage: UNK, UNKNOWN
  4. TRAVATAN [Concomitant]
     Dosage: UNK, UNKNOWN
  5. COSOPT [Concomitant]
     Dosage: UNK, UNKNOWN
  6. MICROPIRIN [Concomitant]
     Dosage: 100 MG, DAILY (1/D)
     Route: 048
  7. GLUCOPHAGE [Concomitant]
     Dosage: 850 MG, DAILY (1/D)
     Route: 048
  8. VASCASE [Concomitant]
     Dosage: 15 MG, DAILY (1/D)
     Route: 048
  9. LEVEMIR [Concomitant]
     Indication: TYPE 2 DIABETES MELLITUS
     Dosage: 60 IU, EACH EVENING
  10. NOVORAPID [Concomitant]
     Indication: TYPE 2 DIABETES MELLITUS
     Dosage: 45 IU, 3/D
     Route: 058
  11. NORMITEN [Concomitant]
     Dosage: 150 MG, DAILY (1/D)
     Route: 048

REACTIONS (2)
  - APPENDICITIS [None]
  - PERITONITIS [None]
